FAERS Safety Report 17578901 (Version 2)
Quarter: 2020Q1

REPORT INFORMATION
  Report Type: Report from Study
  Country: IL (occurrence: IL)
  Receive Date: 20200325
  Receipt Date: 20200331
  Transmission Date: 20200409
  Serious: Yes (Hospitalization)
  Sender: FDA-Public Use
  Company Number: IL-ROCHE-2568448

PATIENT
  Age: 53 Year
  Sex: Female

DRUGS (1)
  1. ALECENSA [Suspect]
     Active Substance: ALECTINIB HYDROCHLORIDE
     Indication: NON-SMALL CELL LUNG CANCER
     Dosage: 600
     Route: 048
     Dates: start: 20190501

REACTIONS (5)
  - Hemiparesis [Recovering/Resolving]
  - Myocardial necrosis marker increased [Unknown]
  - Cough [Recovering/Resolving]
  - Chest pain [Recovered/Resolved]
  - Nasopharyngitis [Recovering/Resolving]

NARRATIVE: CASE EVENT DATE: 20200308
